FAERS Safety Report 10204538 (Version 1)
Quarter: 2014Q2

REPORT INFORMATION
  Report Type: Spontaneous
  Country: US (occurrence: None)
  Receive Date: 20140527
  Receipt Date: 20140527
  Transmission Date: 20141212
  Serious: Yes (Life-Threatening)
  Sender: FDA-Public Use
  Company Number: None

PATIENT
  Age: 66 Year
  Sex: Male
  Weight: 140.62 kg

DRUGS (1)
  1. VICTOZA 1ML [Suspect]
     Indication: BLOOD GLUCOSE INCREASED
     Route: 058
     Dates: start: 20140521, end: 20140521

REACTIONS (3)
  - Respiratory arrest [None]
  - Respiratory disorder [None]
  - Dyspnoea [None]
